FAERS Safety Report 17492425 (Version 1)
Quarter: 2020Q1

REPORT INFORMATION
  Report Type: Spontaneous
  Country: CA (occurrence: CA)
  Receive Date: 20200304
  Receipt Date: 20200304
  Transmission Date: 20200409
  Serious: Yes (Hospitalization)
  Sender: FDA-Public Use
  Company Number: CA-TEVA-2020-CA-1192146

PATIENT
  Age: 85 Year
  Sex: Female
  Weight: 57 kg

DRUGS (6)
  1. RIVAROXABAN (BAY59-7939) VS. ASA [Interacting]
     Active Substance: RIVAROXABAN
     Indication: ATRIAL FIBRILLATION
     Dosage: 15 MILLIGRAM DAILY;
     Route: 048
  2. PROBIOTIC [Concomitant]
     Active Substance: PROBIOTICS NOS
  3. DILTIAZEM. [Suspect]
     Active Substance: DILTIAZEM
     Indication: ATRIAL FIBRILLATION
     Dosage: 360 MILLIGRAM DAILY;
     Route: 048
  4. RISEDRONATE(MANUFACTURERUNKNOWN) [Concomitant]
  5. VITAMIN D [Concomitant]
     Active Substance: VITAMIN D NOS
  6. RIVAROXABAN (BAY59-7939) VS. ASA [Interacting]
     Active Substance: RIVAROXABAN
     Dosage: 20 MILLIGRAM DAILY;
     Route: 048

REACTIONS (5)
  - Dyspnoea [Recovering/Resolving]
  - Anaemia [Recovering/Resolving]
  - Asthenia [Recovering/Resolving]
  - Drug interaction [Recovering/Resolving]
  - Heart rate increased [Recovering/Resolving]
